FAERS Safety Report 10362221 (Version 3)
Quarter: 2015Q3

REPORT INFORMATION
  Report Type: Spontaneous
  Country: US (occurrence: US)
  Receive Date: 20140805
  Receipt Date: 20150917
  Transmission Date: 20151125
  Serious: Yes (Death, Hospitalization, Other)
  Sender: FDA-Public Use
  Company Number: US-009507513-1408USA001194

PATIENT
  Sex: Male
  Weight: 99.77 kg

DRUGS (3)
  1. JANUMET [Suspect]
     Active Substance: METFORMIN HYDROCHLORIDE\SITAGLIPTIN PHOSPHATE
     Dosage: 50/1000 MG QD
     Route: 048
     Dates: start: 20090929, end: 201006
  2. BYETTA [Suspect]
     Active Substance: EXENATIDE
     Indication: TYPE 2 DIABETES MELLITUS
     Dosage: 5 MICROGRAM, BID
     Dates: start: 20050928, end: 20060101
  3. JANUMET [Suspect]
     Active Substance: METFORMIN HYDROCHLORIDE\SITAGLIPTIN PHOSPHATE
     Indication: TYPE 2 DIABETES MELLITUS
     Dosage: 50/1000 MG BID
     Route: 048
     Dates: start: 2007, end: 20090929

REACTIONS (40)
  - Diabetes mellitus inadequate control [Unknown]
  - Radiotherapy [Unknown]
  - Adverse event [Unknown]
  - Pulmonary mass [Unknown]
  - Hyperlipidaemia [Unknown]
  - Nephrolithiasis [Unknown]
  - Pancreaticoduodenectomy [Unknown]
  - Metastases to liver [Unknown]
  - Orchidectomy [Unknown]
  - Renal failure [Unknown]
  - Arteriosclerosis coronary artery [Unknown]
  - Neuropathy peripheral [Unknown]
  - Hypercholesterolaemia [Unknown]
  - Oedema peripheral [Unknown]
  - Seminoma [Unknown]
  - Shoulder operation [Unknown]
  - Pancreatic carcinoma [Fatal]
  - Visual impairment [Unknown]
  - Organic erectile dysfunction [Unknown]
  - Pancreatic carcinoma recurrent [Fatal]
  - Bile duct stent insertion [Unknown]
  - Vascular calcification [Unknown]
  - Vascular calcification [Unknown]
  - Coronary artery stenosis [Unknown]
  - Drug hypersensitivity [Unknown]
  - Cholangitis [Unknown]
  - Orthostatic hypotension [Unknown]
  - Essential hypertension [Unknown]
  - Constipation [Unknown]
  - Bile duct cancer [Unknown]
  - Exostosis [Unknown]
  - Diarrhoea [Unknown]
  - Cholangiocarcinoma [Unknown]
  - Inappropriate schedule of drug administration [Unknown]
  - Diabetic nephropathy [Unknown]
  - Bile duct stent insertion [Unknown]
  - Retinal disorder [Recovering/Resolving]
  - Dizziness [Unknown]
  - Normochromic normocytic anaemia [Unknown]
  - Azotaemia [Unknown]

NARRATIVE: CASE EVENT DATE: 20090929
